FAERS Safety Report 21273434 (Version 1)
Quarter: 2022Q3

REPORT INFORMATION
  Report Type: Spontaneous
  Country: US (occurrence: None)
  Receive Date: 20220830
  Receipt Date: 20220830
  Transmission Date: 20221027
  Serious: No
  Sender: FDA-Public Use
  Company Number: None

PATIENT
  Sex: Female

DRUGS (1)
  1. LENALIDOMIDE [Suspect]
     Active Substance: LENALIDOMIDE
     Indication: Plasma cell myeloma
     Dosage: 25MG DAILY BY MOUTH
     Route: 048
     Dates: start: 20220720

REACTIONS (4)
  - Critical illness [None]
  - Renal impairment [None]
  - Diarrhoea [None]
  - Blood potassium decreased [None]
